FAERS Safety Report 5703145-9 (Version None)
Quarter: 2008Q2

REPORT INFORMATION
  Report Type: 
  Country: None (occurrence: None)
  Receive Date: 20080411
  Receipt Date: 20080408
  Transmission Date: 20081010
  Serious: Yes (Disabling)
  Sender: FDA-Public Use
  Company Number: FR-WYE-G01366308

PATIENT
  Sex: Male

DRUGS (5)
  1. EFFEXOR [Suspect]
     Indication: DEPRESSION
     Dosage: 150 MG TOTAL DAILY
     Route: 048
  2. NOCTRAN 10 [Suspect]
     Indication: INSOMNIA
     Dosage: 20 MG TOTAL DAILY
     Route: 048
     Dates: start: 20060901
  3. NEURONTIN [Suspect]
     Indication: EPILEPSY
     Dosage: 1200 MG TOTAL DAILY
     Route: 048
     Dates: start: 20060901
  4. RIVOTRIL [Suspect]
     Indication: ANXIETY
     Dosage: 6 MG TOTAL DAILY
     Route: 048
     Dates: start: 20060101
  5. LEPONEX [Suspect]
     Indication: SCHIZOPHRENIA
     Dosage: 600 MG TOTAL DAILY
     Route: 048
     Dates: start: 20060901

REACTIONS (2)
  - ENURESIS [None]
  - FATIGUE [None]
